FAERS Safety Report 20655110 (Version 3)
Quarter: 2022Q2

REPORT INFORMATION
  Report Type: Spontaneous
  Country: TH (occurrence: TH)
  Receive Date: 20220330
  Receipt Date: 20220411
  Transmission Date: 20220721
  Serious: Yes (Other)
  Sender: FDA-Public Use
  Company Number: TH-002147023-NVSC2022TH061598

PATIENT

DRUGS (7)
  1. RUXOLITINIB [Suspect]
     Active Substance: RUXOLITINIB
     Indication: Myelofibrosis
     Dosage: 30 MG PER DAY
     Route: 065
     Dates: start: 20210809
  2. RUXOLITINIB [Suspect]
     Active Substance: RUXOLITINIB
     Dosage: 30 MG PER DAY
     Route: 065
     Dates: start: 20210823
  3. RUXOLITINIB [Suspect]
     Active Substance: RUXOLITINIB
     Dosage: 30 MG PER DAY
     Route: 065
     Dates: start: 20211018
  4. RUXOLITINIB [Suspect]
     Active Substance: RUXOLITINIB
     Dosage: 15 MG PER DAY
     Route: 065
     Dates: start: 20211115
  5. RUXOLITINIB [Suspect]
     Active Substance: RUXOLITINIB
     Dosage: 15 MG PER DAY
     Route: 065
     Dates: start: 20211220
  6. RUXOLITINIB [Suspect]
     Active Substance: RUXOLITINIB
     Dosage: 15 MG PER DAY
     Route: 065
     Dates: start: 20220117
  7. RUXOLITINIB [Suspect]
     Active Substance: RUXOLITINIB
     Dosage: 30 MG PER DAY
     Route: 065
     Dates: start: 20220314

REACTIONS (11)
  - Reticulocyte count abnormal [Unknown]
  - Haemoglobin decreased [Unknown]
  - Haematocrit decreased [Unknown]
  - Blood lactate dehydrogenase increased [Unknown]
  - Lymphocyte count decreased [Unknown]
  - Myeloproliferative neoplasm [Unknown]
  - Monocyte count increased [Unknown]
  - Platelet count decreased [Unknown]
  - Splenomegaly [Unknown]
  - Thrombocytopenia [Unknown]
  - White blood cell count increased [Unknown]

NARRATIVE: CASE EVENT DATE: 20210809
